FAERS Safety Report 5415328-6 (Version None)
Quarter: 2007Q3

REPORT INFORMATION
  Report Type: 
  Country: None (occurrence: None)
  Receive Date: 20070813
  Receipt Date: 20070801
  Transmission Date: 20080115
  Serious: Yes (Other)
  Sender: FDA-Public Use
  Company Number: 17166

PATIENT
  Sex: Male

DRUGS (7)
  1. VINCRISTINE [Suspect]
     Indication: EWING'S SARCOMA
  2. ETOPOSIDE [Suspect]
     Indication: EWING'S SARCOMA
  3. ACTINOMYCIN-D [Suspect]
     Indication: EWING'S SARCOMA
  4. IFOSFAMIDE [Suspect]
     Indication: EWING'S SARCOMA
  5. DOXORUBICIN [Suspect]
     Indication: EWING'S SARCOMA
  6. RADIOTHERAPY [Suspect]
     Indication: EWING'S SARCOMA
  7. CONTRAST MEDIA [Concomitant]

REACTIONS (1)
  - FOCAL NODULAR HYPERPLASIA [None]
